FAERS Safety Report 5679334-9 (Version None)
Quarter: 2008Q1

REPORT INFORMATION
  Report Type: 
  Country: None (occurrence: None)
  Receive Date: 20080325
  Receipt Date: 20080314
  Transmission Date: 20080703
  Serious: Yes (Hospitalization)
  Sender: FDA-Public Use
  Company Number: JP-ELI_LILLY_AND_COMPANY-JP200803005110

PATIENT
  Age: 30 Year
  Sex: Female
  Weight: 72.4 kg

DRUGS (1)
  1. HUMALOG [Suspect]
     Indication: DIABETES MELLITUS
     Dosage: 0 - 4 U, DAILY (1/D)

REACTIONS (2)
  - DIABETIC RETINOPATHY [None]
  - DRUG EXPOSURE DURING PREGNANCY [None]
